FAERS Safety Report 7533147-1 (Version None)
Quarter: 2011Q2

REPORT INFORMATION
  Report Type: 
  Country: None (occurrence: None)
  Receive Date: 20110608
  Receipt Date: 20030207
  Transmission Date: 20111010
  Serious: Yes (Death)
  Sender: FDA-Public Use
  Company Number: PHHO2003CA02004

PATIENT
  Sex: Female

DRUGS (1)
  1. CLOZARIL [Suspect]
     Dates: start: 19060506

REACTIONS (1)
  - DEATH [None]
